FAERS Safety Report 25070017 (Version 2)
Quarter: 2025Q1

REPORT INFORMATION
  Report Type: Report from Study
  Country: US (occurrence: US)
  Receive Date: 20250312
  Receipt Date: 20250324
  Transmission Date: 20250408
  Serious: Yes (Hospitalization)
  Sender: PAREXEL
  Company Number: US-STEMLINE THERAPEUTICS, INC-2025-STML-US000217

PATIENT

DRUGS (2)
  1. ORSERDU [Suspect]
     Active Substance: ELACESTRANT
     Indication: Breast cancer female
     Dosage: 345 MG, DAILY
     Route: 048
     Dates: start: 202412
  2. ORSERDU [Suspect]
     Active Substance: ELACESTRANT
     Dosage: 345 MG, DAILY
     Route: 048

REACTIONS (1)
  - Pneumonia [Unknown]
